FAERS Safety Report 11449229 (Version 1)
Quarter: 2015Q3

REPORT INFORMATION
  Report Type: Report from Study
  Country: UG (occurrence: UG)
  Receive Date: 20150902
  Receipt Date: 20150902
  Transmission Date: 20151125
  Serious: Yes (Other)
  Sender: FDA-Public Use
  Company Number: UG-ABBVIE-15P-165-1454518-00

PATIENT
  Age: 33 Year

DRUGS (6)
  1. KALETRA [Suspect]
     Active Substance: LOPINAVIR\RITONAVIR
     Dosage: PRIOR TO CONCEPTION; 2ND COURSE; FIRST TRIMESTER EXPOSURE
     Route: 048
     Dates: start: 20070419, end: 20080612
  2. KALETRA [Suspect]
     Active Substance: LOPINAVIR\RITONAVIR
     Indication: ANTIRETROVIRAL THERAPY
     Dosage: 2ND COURSE; PRIOR TO CONCEPTION; FIRST TRIMESTER EXPOSURE
     Route: 048
     Dates: start: 20070618
  3. ZIAGEN [Suspect]
     Active Substance: ABACAVIR SULFATE
     Indication: ANTIRETROVIRAL THERAPY
     Dosage: PRIOR TO CONCEPTION; 2ND COURE; FIRST TRIMESTER EXPOSURE
     Route: 048
     Dates: start: 20060531, end: 20080612
  4. EPIVIR [Suspect]
     Active Substance: LAMIVUDINE
     Indication: ANTIRETROVIRAL THERAPY
     Dosage: PRIOR TO CONCEPTION; 2ND COURSE; FIRST TRIMESTER EXPOSURE
     Route: 048
     Dates: start: 20070703, end: 20080612
  5. ZIAGEN [Suspect]
     Active Substance: ABACAVIR SULFATE
     Dosage: 2ND COURSE; PRIOR TO CONCEPTION; FIRST TRIMESTER EXPOSURE
     Route: 048
     Dates: start: 20070618
  6. EPIVIR [Suspect]
     Active Substance: LAMIVUDINE
     Dosage: PRIOR TO CONCEPTION; 2ND COURSE; FIRST TRIMESTER EXPOSURE
     Route: 048
     Dates: start: 20070618

REACTIONS (2)
  - Exposure during pregnancy [Unknown]
  - Abortion induced [Unknown]

NARRATIVE: CASE EVENT DATE: 20080622
